FAERS Safety Report 7780813-9 (Version None)
Quarter: 2011Q3

REPORT INFORMATION
  Report Type: 
  Country: None (occurrence: None)
  Receive Date: 20110927
  Receipt Date: 20110906
  Transmission Date: 20111222
  Serious: Yes (Other)
  Sender: FDA-Public Use
  Company Number: US-BAYER-2011-083394

PATIENT
  Age: 67 Year
  Sex: Male
  Weight: 77 kg

DRUGS (3)
  1. ALEVE (CAPLET) [Suspect]
     Indication: ARTHRITIS
     Dosage: 0.5 DF, BID
     Route: 048
     Dates: start: 20110828, end: 20110905
  2. CELEBREX [Concomitant]
  3. GABAPENTIN [Concomitant]

REACTIONS (1)
  - MELAENA [None]
